FAERS Safety Report 8155867-0 (Version None)
Quarter: 2012Q1

REPORT INFORMATION
  Report Type: 
  Country: None (occurrence: None)
  Receive Date: 20120222
  Receipt Date: 20120217
  Transmission Date: 20120608
  Serious: Yes (Hospitalization)
  Sender: FDA-Public Use
  Company Number: CA-TEVA-323513USA

PATIENT
  Age: 27 Year
  Sex: Female
  Weight: 47 kg

DRUGS (5)
  1. ACETAMINOPHEN [Concomitant]
  2. ALBUTEROL SULFATE AUTOHALER [Concomitant]
  3. CEPHALEXIN [Suspect]
     Dosage: 2000 MILLIGRAM;
  4. MAGNESIUM HYDROXIDE TAB [Concomitant]
     Route: 048
  5. SENNOSIDE A+B CALCIUM [Concomitant]

REACTIONS (2)
  - LIP SWELLING [None]
  - PHARYNGEAL OEDEMA [None]
